FAERS Safety Report 11440614 (Version 1)
Quarter: 2015Q3

REPORT INFORMATION
  Report Type: Spontaneous
  Country: US (occurrence: US)
  Receive Date: 20150821
  Receipt Date: 20150821
  Transmission Date: 20151125
  Serious: No
  Sender: FDA-Public Use
  Company Number: US-ELI_LILLY_AND_COMPANY-US200704001762

PATIENT
  Age: 52 Year
  Sex: Female
  Weight: 66.67 kg

DRUGS (11)
  1. CYMBALTA [Suspect]
     Active Substance: DULOXETINE HYDROCHLORIDE
     Indication: FIBROMYALGIA
     Dosage: 30 MG, DAILY (1/D)
     Dates: start: 200610
  2. LYRICA [Concomitant]
     Active Substance: PREGABALIN
  3. CYMBALTA [Suspect]
     Active Substance: DULOXETINE HYDROCHLORIDE
     Dosage: 40 MG, UNK
  4. CYMBALTA [Suspect]
     Active Substance: DULOXETINE HYDROCHLORIDE
     Dosage: 60 MG, UNK
  5. THYROID THERAPY [Concomitant]
     Active Substance: UNSPECIFIED INGREDIENT
     Dosage: UNK, DAILY (1/D)
  6. KLONOPIN [Concomitant]
     Active Substance: CLONAZEPAM
  7. KEFLEX [Concomitant]
     Active Substance: CEPHALEXIN
  8. AUGMENTIN [Concomitant]
     Active Substance: AMOXICILLIN\CLAVULANATE POTASSIUM
  9. MIDRIN [Concomitant]
     Active Substance: ACETAMINOPHEN\DICHLORALPHENAZONE\ISOMETHEPTENE
     Indication: MIGRAINE
     Dosage: UNK, AS NEEDED
  10. MULTIVITAMIN [Concomitant]
     Active Substance: VITAMINS
  11. SOMA [Concomitant]
     Active Substance: CARISOPRODOL

REACTIONS (6)
  - Haematoma [Recovered/Resolved]
  - Ear infection [Unknown]
  - Disturbance in attention [Not Recovered/Not Resolved]
  - Contusion [Not Recovered/Not Resolved]
  - Anxiety [Not Recovered/Not Resolved]
  - Bleeding time prolonged [Not Recovered/Not Resolved]
